FAERS Safety Report 4660797-2 (Version None)
Quarter: 2005Q2

REPORT INFORMATION
  Report Type: 
  Country: None (occurrence: None)
  Receive Date: 20050511
  Receipt Date: 20050504
  Transmission Date: 20051028
  Serious: Yes (Hospitalization)
  Sender: FDA-Public Use
  Company Number: US-2005-000803

PATIENT
  Age: 75 Year
  Sex: Female

DRUGS (2)
  1. BETASERON [Suspect]
     Indication: SECONDARY PROGRESSIVE MULTIPLE SCLEROSIS
     Dosage: EVERY 2D, SUBCUTANEOUS
     Route: 058
     Dates: start: 19940209, end: 20050105
  2. BETASERON [Suspect]
     Indication: SECONDARY PROGRESSIVE MULTIPLE SCLEROSIS
     Dosage: EVERY 2D, SUBCUTANEOUS
     Route: 058
     Dates: start: 20050117

REACTIONS (2)
  - INSOMNIA [None]
  - MYOCARDIAL INFARCTION [None]
